FAERS Safety Report 12351577 (Version 1)
Quarter: 2016Q2

REPORT INFORMATION
  Report Type: Report from Study
  Country: BR (occurrence: BR)
  Receive Date: 20160510
  Receipt Date: 20160510
  Transmission Date: 20160815
  Serious: Yes (Death, Hospitalization, Other)
  Sender: FDA-Public Use
  Company Number: BR-ABBVIE-16K-020-1621496-00

PATIENT
  Age: 64 Year
  Sex: Male
  Weight: 60 kg

DRUGS (1)
  1. HUMIRA [Suspect]
     Active Substance: ADALIMUMAB
     Indication: PSORIASIS
     Route: 058

REACTIONS (13)
  - Cardiac arrest [Fatal]
  - Hypotension [Unknown]
  - Pyrexia [Unknown]
  - Pneumonia [Unknown]
  - Syncope [Unknown]
  - Malaise [Unknown]
  - Daydreaming [Unknown]
  - Cardiac arrest [Unknown]
  - Multiple organ dysfunction syndrome [Unknown]
  - Feeling hot [Unknown]
  - Feeling cold [Unknown]
  - Liver disorder [Unknown]
  - Pain [Unknown]

NARRATIVE: CASE EVENT DATE: 201411
